FAERS Safety Report 7874686 (Version 6)
Quarter: 2012Q4

REPORT INFORMATION
  Report Type: Report from Study
  Country: US (occurrence: US)
  Receive Date: 20110328
  Receipt Date: 20121224
  Transmission Date: 20130627
  Serious: Yes (Hospitalization)
  Sender: FDA-Public Use
  Company Number: PHHO2011US03792

PATIENT
  Age: 55 Year
  Sex: Female
  Weight: 75 kg

DRUGS (5)
  1. CERTICAN [Suspect]
     Indication: RENAL TRANSPLANT
     Dosage: 0.75 mg, BID
     Route: 048
     Dates: start: 20110126, end: 20110127
  2. CERTICAN [Suspect]
     Dosage: 1.5 mg, BID
     Route: 048
     Dates: start: 20110127
  3. SIMULECT / CHI 621A / SDZ CHI 621 [Suspect]
     Indication: RENAL TRANSPLANT
  4. TACROLIMUS [Suspect]
     Route: 048
  5. CORTICOSTEROIDS [Suspect]
     Indication: RENAL TRANSPLANT
     Route: 048

REACTIONS (5)
  - Lymphocele [Recovered/Resolved]
  - Perinephric collection [Recovering/Resolving]
  - Hydronephrosis [Recovered/Resolved]
  - Oedema peripheral [Recovering/Resolving]
  - Pain in extremity [Recovered/Resolved]
